FAERS Safety Report 10516885 (Version 1)
Quarter: 2014Q4

REPORT INFORMATION
  Report Type: Spontaneous
  Country: US (occurrence: None)
  Receive Date: 20141003
  Receipt Date: 20141003
  Transmission Date: 20150528
  Serious: Yes (Other)
  Sender: FDA-Public Use
  Company Number: 1324748

PATIENT
  Age: 75 Year
  Sex: Female

DRUGS (2)
  1. PEGASYS [Suspect]
     Active Substance: PEGINTERFERON ALFA-2A
     Indication: HEPATITIS C
     Route: 058
     Dates: start: 20130625, end: 20131202
  2. COPEGUS [Suspect]
     Active Substance: RIBAVIRIN
     Indication: HEPATITIS C
     Dosage: IN 2 DIVIDED DOSE
     Route: 048
     Dates: start: 20130625

REACTIONS (10)
  - Suicidal ideation [None]
  - Depression [None]
  - Fatigue [None]
  - Dyspnoea [None]
  - Pruritus [None]
  - Alopecia [None]
  - Anxiety [None]
  - Blood test abnormal [None]
  - Balance disorder [None]
  - Vision blurred [None]
